FAERS Safety Report 7824407-5 (Version None)
Quarter: 2011Q4

REPORT INFORMATION
  Report Type: 
  Country: None (occurrence: None)
  Receive Date: 20111019
  Receipt Date: 20111012
  Transmission Date: 20120403
  Serious: Yes (Other)
  Sender: FDA-Public Use
  Company Number: BE-AMGEN-BELSP2011044226

PATIENT
  Age: 72 Year
  Sex: Female
  Weight: 70 kg

DRUGS (9)
  1. ENBREL [Suspect]
     Dosage: 25 MG, 2X/WEEK
     Route: 058
     Dates: start: 20110906
  2. METHOTREXATE [Concomitant]
     Dosage: UNK
     Route: 048
     Dates: start: 20070601
  3. SIMVASTATIN [Concomitant]
     Dosage: 20 MG, 1X/DAY
     Route: 048
     Dates: start: 20100101
  4. NAPROXEN [Concomitant]
     Dosage: 375 MG, 1X/DAY
     Route: 048
     Dates: start: 20110401
  5. LOSARTAN POTASSIUM [Concomitant]
     Dosage: 100 MG, 1X/DAY
     Route: 048
     Dates: start: 20100501
  6. SERENASE                           /00027401/ [Concomitant]
     Dosage: 2.5 MG, 1X/DAY
     Route: 048
     Dates: start: 20070101
  7. ENBREL [Suspect]
     Indication: PRODUCT USED FOR UNKNOWN INDICATION
     Dosage: 25 MG, 2X/WEEK
     Route: 058
     Dates: start: 20070505, end: 20110903
  8. CYMBALTA [Concomitant]
     Dosage: 60 MG, 1X/DAY
     Route: 048
  9. THYROXIN [Concomitant]
     Dosage: 0.075 MG, 1X/DAY
     Route: 048
     Dates: start: 20070701

REACTIONS (4)
  - INJECTION SITE PAIN [None]
  - HYPOTENSION [None]
  - INJECTION SITE MASS [None]
  - HYPERTENSION [None]
